FAERS Safety Report 25680481 (Version 1)
Quarter: 2025Q3

REPORT INFORMATION
  Report Type: Report from Study
  Country: US (occurrence: US)
  Receive Date: 20250814
  Receipt Date: 20250814
  Transmission Date: 20251021
  Serious: Yes (Death)
  Sender: ACADIA PHARMACEUTICALS
  Company Number: US-ACADIA PHARMACEUTICALS INC.-ACA-2025-PIM-009131

PATIENT
  Age: 76 Year
  Sex: Male

DRUGS (18)
  1. NUPLAZID [Suspect]
     Active Substance: PIMAVANSERIN TARTRATE
     Indication: Parkinson^s disease
     Dosage: 34 MILLIGRAM, QD
     Route: 048
     Dates: start: 20191221, end: 20250720
  2. LORATADINE [Concomitant]
     Active Substance: LORATADINE
  3. HYDROCHLOROTHIAZIDE\TRIAMTERENE [Concomitant]
     Active Substance: HYDROCHLOROTHIAZIDE\TRIAMTERENE
  4. DICLOFENAC [Concomitant]
     Active Substance: DICLOFENAC
  5. MIRTAZAPINE [Concomitant]
     Active Substance: MIRTAZAPINE
  6. MELATONIN [Concomitant]
     Active Substance: MELATONIN
  7. RYTARY [Concomitant]
     Active Substance: CARBIDOPA\LEVODOPA
  8. BUSPIRONE [Concomitant]
     Active Substance: BUSPIRONE HYDROCHLORIDE
  9. VITAMINS NOS [Concomitant]
     Active Substance: VITAMINS
  10. VITAMIN C [Concomitant]
     Active Substance: ASCORBIC ACID
  11. VITAMIN D NOS [Concomitant]
     Active Substance: CHOLECALCIFEROL\ERGOCALCIFEROL
  12. QUETIAPINE [Concomitant]
     Active Substance: QUETIAPINE
  13. FENOFIBRATE [Concomitant]
     Active Substance: FENOFIBRATE
  14. FINASTERIDE [Concomitant]
     Active Substance: FINASTERIDE
  15. JANUVIA [Concomitant]
     Active Substance: SITAGLIPTIN PHOSPHATE
  16. METFORMIN [Concomitant]
     Active Substance: METFORMIN HYDROCHLORIDE
  17. PIOGLITAZONE [Concomitant]
     Active Substance: PIOGLITAZONE
  18. SIMVASTATIN [Concomitant]
     Active Substance: SIMVASTATIN

REACTIONS (3)
  - Illness [Fatal]
  - Decreased appetite [Fatal]
  - Adverse drug reaction [Recovered/Resolved]

NARRATIVE: CASE EVENT DATE: 20250720
